FAERS Safety Report 15550782 (Version 1)
Quarter: 2018Q4

REPORT INFORMATION
  Report Type: Report from Study
  Country: GB (occurrence: GB)
  Receive Date: 20181025
  Receipt Date: 20181025
  Transmission Date: 20190205
  Serious: Yes (Death, Congenital Anomaly, Other)
  Sender: FDA-Public Use
  Company Number: GB-PFIZER INC-2018432783

PATIENT
  Sex: Female
  Weight: 1.99 kg

DRUGS (4)
  1. RITONAVIR. [Suspect]
     Active Substance: RITONAVIR
     Indication: HIV INFECTION
     Dosage: 100 MG, 1X/DAY
     Route: 064
     Dates: start: 20171001, end: 20180630
  2. EMTRICITABINE + TENOFOVIR DISOPROXIL FUMARATE [Suspect]
     Active Substance: EMTRICITABINE\TENOFOVIR DISOPROXIL FUMARATE
     Indication: HIV INFECTION
     Dosage: 1 DF, 1X/DAY
     Route: 064
     Dates: start: 20171001, end: 20180630
  3. ATAZANAVIR SULFATE. [Suspect]
     Active Substance: ATAZANAVIR SULFATE
     Indication: HIV INFECTION
     Dosage: 300 MG, 1X/DAY
     Route: 064
     Dates: start: 20171001, end: 20180630
  4. DALTEPARIN SODIUM [Suspect]
     Active Substance: DALTEPARIN SODIUM
     Dosage: UNK
     Route: 064

REACTIONS (7)
  - Foetal exposure during pregnancy [Fatal]
  - Trisomy 18 [Unknown]
  - Ventricular septal defect [Unknown]
  - Tracheo-oesophageal fistula [Recovered/Resolved]
  - Oesophageal atresia [Recovered/Resolved]
  - Nervous system disorder [Unknown]
  - Death [Fatal]

NARRATIVE: CASE EVENT DATE: 20171001
